FAERS Safety Report 16289016 (Version 3)
Quarter: 2022Q3

REPORT INFORMATION
  Report Type: Spontaneous
  Country: US (occurrence: None)
  Receive Date: 20190509
  Receipt Date: 20220813
  Transmission Date: 20221027
  Serious: Yes (Death, Other)
  Sender: FDA-Public Use
  Company Number: 2019SE66895

PATIENT
  Sex: Female
  Weight: 72.6 kg

DRUGS (98)
  1. NEXIUM [Suspect]
     Active Substance: ESOMEPRAZOLE MAGNESIUM
     Indication: Dyspepsia
     Route: 048
     Dates: start: 2007, end: 2019
  2. PRILOSEC [Suspect]
     Active Substance: OMEPRAZOLE MAGNESIUM
     Indication: Dyspepsia
     Route: 048
     Dates: start: 1989, end: 2018
  3. PRILOSEC [Suspect]
     Active Substance: OMEPRAZOLE MAGNESIUM
     Indication: Dyspepsia
     Dosage: GENERIC
     Route: 065
     Dates: start: 20160823
  4. DEXILANT [Suspect]
     Active Substance: DEXLANSOPRAZOLE
     Indication: Dyspepsia
     Route: 065
     Dates: start: 2018, end: 2020
  5. DEXILANT [Suspect]
     Active Substance: DEXLANSOPRAZOLE
     Indication: Dyspepsia
     Route: 065
     Dates: start: 20170808
  6. DEXILANT [Suspect]
     Active Substance: DEXLANSOPRAZOLE
     Indication: Dyspepsia
     Route: 065
     Dates: start: 20170711
  7. PREVACID [Suspect]
     Active Substance: LANSOPRAZOLE
     Indication: Dyspepsia
     Route: 065
     Dates: start: 1995, end: 2018
  8. PROTONIX [Suspect]
     Active Substance: PANTOPRAZOLE SODIUM
     Indication: Dyspepsia
     Route: 065
     Dates: start: 2007, end: 2019
  9. PROTONIX [Suspect]
     Active Substance: PANTOPRAZOLE SODIUM
     Indication: Dyspepsia
     Route: 065
     Dates: start: 20160209
  10. ACYCLOVIR [Concomitant]
     Active Substance: ACYCLOVIR
     Indication: Infection
  11. ACYCLOVIR [Concomitant]
     Active Substance: ACYCLOVIR
     Indication: Varicella
  12. AMOXICILLIN [Concomitant]
     Active Substance: AMOXICILLIN
     Indication: Infection
  13. AMOXICILLIN [Concomitant]
     Active Substance: AMOXICILLIN
     Indication: Antibiotic level
  14. AZITHROMYCIN [Concomitant]
     Active Substance: AZITHROMYCIN
     Indication: Infection
  15. AZITHROMYCIN [Concomitant]
     Active Substance: AZITHROMYCIN
     Indication: Antibiotic level
  16. CIPROFLOXACIN [Concomitant]
     Active Substance: CIPROFLOXACIN
     Indication: Infection
  17. CIPROFLOXACIN [Concomitant]
     Active Substance: CIPROFLOXACIN
     Indication: Antibiotic level
  18. CALCITRIOL [Concomitant]
     Active Substance: CALCITRIOL
     Indication: Hyperparathyroidism
  19. HYDROXYZINE [Concomitant]
     Active Substance: HYDROXYZINE HYDROCHLORIDE
     Indication: Multiple allergies
  20. CALCIUM ACETATE [Concomitant]
     Active Substance: CALCIUM ACETATE
     Indication: Blood phosphorus
  21. LOMOTIL [Concomitant]
     Active Substance: ATROPINE SULFATE\DIPHENOXYLATE HYDROCHLORIDE
     Indication: Diarrhoea
  22. PERCOCET [Concomitant]
     Active Substance: ACETAMINOPHEN\OXYCODONE HYDROCHLORIDE
     Indication: Pain
  23. PROMETHAZINE [Concomitant]
     Active Substance: PROMETHAZINE HYDROCHLORIDE
     Indication: Hypersensitivity
  24. SENSIPAR [Concomitant]
     Active Substance: CINACALCET HYDROCHLORIDE
     Indication: Hyperparathyroidism
  25. RENAPLEX [Concomitant]
     Indication: Hypovitaminosis
  26. METOPROLOL [Concomitant]
     Active Substance: METOPROLOL
     Indication: Hypertension
  27. VITAMIN D [Concomitant]
     Active Substance: VITAMIN D NOS
     Indication: Vital signs measurement
  28. RENAPLEX [Concomitant]
     Indication: Renal disorder
  29. PEPCID [Concomitant]
     Active Substance: FAMOTIDINE
  30. RANITIDINE [Concomitant]
     Active Substance: RANITIDINE
  31. TUMS [Concomitant]
     Active Substance: CALCIUM CARBONATE
  32. ROLAIDS [Concomitant]
     Active Substance: CALCIUM CARBONATE\MAGNESIUM HYDROXIDE
  33. MAALOX ANTACID [Concomitant]
     Active Substance: ALUMINUM HYDROXIDE\DIMETHICONE\MAGNESIUM HYDROXIDE
  34. AMITRIPTYLINE [Concomitant]
     Active Substance: AMITRIPTYLINE
  35. METOPROLOL TARTRATE [Concomitant]
     Active Substance: METOPROLOL TARTRATE
  36. BUSPIRONE HYDROCHLORIDE [Concomitant]
     Active Substance: BUSPIRONE HYDROCHLORIDE
  37. LYRICA [Concomitant]
     Active Substance: PREGABALIN
  38. FLUOXETINE [Concomitant]
     Active Substance: FLUOXETINE HYDROCHLORIDE
  39. COLESTIPOL HYDROCHLORIDE [Concomitant]
     Active Substance: COLESTIPOL HYDROCHLORIDE
  40. LIDOCAINE [Concomitant]
     Active Substance: LIDOCAINE
  41. POLYETHYLENE GLYCOL [Concomitant]
     Active Substance: POLYETHYLENE GLYCOL
  42. PREDNISONE [Concomitant]
     Active Substance: PREDNISONE
  43. CLOTRIMAZOLE [Concomitant]
     Active Substance: CLOTRIMAZOLE
  44. FLUCONAZOLE [Concomitant]
     Active Substance: FLUCONAZOLE
  45. METHOCARBAMOL [Concomitant]
     Active Substance: METHOCARBAMOL
  46. DIPHENOXYLATE [Concomitant]
     Active Substance: DIPHENOXYLATE
  47. PROMETHAZINE HYDROCHLORIDE [Concomitant]
     Active Substance: PROMETHAZINE HYDROCHLORIDE
  48. ATROPINE SULFATE\DIPHENOXYLATE [Concomitant]
     Active Substance: ATROPINE SULFATE\DIPHENOXYLATE
  49. ONDANSETRON HYDROCHLORIDE [Concomitant]
     Active Substance: ONDANSETRON HYDROCHLORIDE
  50. CLONAZEPAM [Concomitant]
     Active Substance: CLONAZEPAM
  51. BENZONATATE [Concomitant]
     Active Substance: BENZONATATE
  52. VENTOLIN HFA [Concomitant]
     Active Substance: ALBUTEROL SULFATE
  53. WARFARIN [Concomitant]
     Active Substance: WARFARIN
  54. METHYLPREDNISOLONE [Concomitant]
     Active Substance: METHYLPREDNISOLONE
  55. FLUOXETINE HYDROCHLORIDE [Concomitant]
     Active Substance: FLUOXETINE HYDROCHLORIDE
  56. CETIRIZINE [Concomitant]
     Active Substance: CETIRIZINE HYDROCHLORIDE
  57. AMOXICILLIN\CLAVULANATE POTASSIUM [Concomitant]
     Active Substance: AMOXICILLIN\CLAVULANATE POTASSIUM
  58. AMLODIPINE BESYLATE [Concomitant]
     Active Substance: AMLODIPINE BESYLATE
  59. ONDANSETRON [Concomitant]
     Active Substance: ONDANSETRON
  60. FLONASE [Concomitant]
     Active Substance: FLUTICASONE PROPIONATE
  61. HYDROXYZINE HYDROCHLORIDE [Concomitant]
     Active Substance: HYDROXYZINE HYDROCHLORIDE
  62. CYCLOBENZAPRINE [Concomitant]
     Active Substance: CYCLOBENZAPRINE
  63. DIAZEPAM [Concomitant]
     Active Substance: DIAZEPAM
  64. PAROXETINE [Concomitant]
     Active Substance: PAROXETINE
  65. ADVAIR DISKUS [Concomitant]
     Active Substance: FLUTICASONE PROPIONATE\SALMETEROL XINAFOATE
  66. ALBUTEROL\IPRATROPIUM BROMIDE [Concomitant]
     Active Substance: ALBUTEROL\IPRATROPIUM BROMIDE
  67. CHOLESTYRAMINE [Concomitant]
     Active Substance: CHOLESTYRAMINE
  68. MORPHINE SULFATE [Concomitant]
     Active Substance: MORPHINE SULFATE
  69. NYSTATIN [Concomitant]
     Active Substance: NYSTATIN
  70. CLOTRIM/ BETA DIPROP [Concomitant]
  71. RENVELA [Concomitant]
     Active Substance: SEVELAMER CARBONATE
  72. LOPERAMIDE [Concomitant]
     Active Substance: LOPERAMIDE
  73. AMITIZA [Concomitant]
     Active Substance: LUBIPROSTONE
  74. HYDROMORPHONE [Concomitant]
     Active Substance: HYDROMORPHONE
  75. ATENOLOL [Concomitant]
     Active Substance: ATENOLOL
  76. MONTELUKAST [Concomitant]
     Active Substance: MONTELUKAST SODIUM
  77. MAGNESIUM OXIDE [Concomitant]
     Active Substance: MAGNESIUM OXIDE
  78. SULFAMETHOXAZOLE\TRIMETHOPRIM [Concomitant]
     Active Substance: SULFAMETHOXAZOLE\TRIMETHOPRIM
  79. ZOLPIDEM [Concomitant]
     Active Substance: ZOLPIDEM TARTRATE
  80. ZYVOX [Concomitant]
     Active Substance: LINEZOLID
  81. AMMONIUM CHLORIDE\DEXTROMETHORPHAN\SODIUM CITRATE [Concomitant]
     Active Substance: AMMONIUM CHLORIDE\DEXTROMETHORPHAN\SODIUM CITRATE
  82. TAMIFLU [Concomitant]
     Active Substance: OSELTAMIVIR PHOSPHATE
  83. CLARITHROMYCIN [Concomitant]
     Active Substance: CLARITHROMYCIN
  84. CITALOPRAM [Concomitant]
     Active Substance: CITALOPRAM HYDROBROMIDE
  85. ABILIFY [Concomitant]
     Active Substance: ARIPIPRAZOLE
  86. AMMONIUM ACETATE [Concomitant]
     Active Substance: AMMONIUM ACETATE
  87. CARAFATE [Concomitant]
     Active Substance: SUCRALFATE
  88. DOXYCYCLINE HYCLATE [Concomitant]
     Active Substance: DOXYCYCLINE HYCLATE
  89. ASACOL [Concomitant]
     Active Substance: MESALAMINE
  90. COLESTIPOL [Concomitant]
     Active Substance: COLESTIPOL
  91. WARFARIN [Concomitant]
     Active Substance: WARFARIN
  92. KETALAR [Concomitant]
     Active Substance: KETAMINE HYDROCHLORIDE
  93. DEMEROL [Concomitant]
     Active Substance: MEPERIDINE HYDROCHLORIDE
  94. VERSED [Concomitant]
     Active Substance: MIDAZOLAM HYDROCHLORIDE
  95. ASTHMANEFRIN [Concomitant]
     Active Substance: RACEPINEPHRINE HYDROCHLORIDE
  96. BENADRYL [Concomitant]
     Active Substance: DIPHENHYDRAMINE HYDROCHLORIDE
  97. APRESOLINE HYDROCHLORIDE [Concomitant]
     Active Substance: HYDRALAZINE HYDROCHLORIDE
  98. DILAUDID [Concomitant]
     Active Substance: HYDROMORPHONE HYDROCHLORIDE

REACTIONS (7)
  - Hypoxic-ischaemic encephalopathy [Fatal]
  - Septic shock [Fatal]
  - Cardiac arrest [Fatal]
  - Chronic kidney disease [Unknown]
  - End stage renal disease [Unknown]
  - Acute kidney injury [Unknown]
  - Renal failure [Unknown]
